FAERS Safety Report 10997745 (Version 1)
Quarter: 2015Q2

REPORT INFORMATION
  Report Type: Spontaneous
  Country: US (occurrence: US)
  Receive Date: 20150408
  Receipt Date: 20150408
  Transmission Date: 20150821
  Serious: No
  Sender: FDA-Public Use
  Company Number: US-BANPHARM-20143060

PATIENT
  Age: 84 Year
  Sex: Female
  Weight: 53.07 kg

DRUGS (7)
  1. ALEVE [Suspect]
     Active Substance: NAPROXEN SODIUM
     Indication: TENDONITIS
     Dosage: 2 DF, BID,
     Route: 048
     Dates: start: 201408
  2. SIMVASTATIN. [Concomitant]
     Active Substance: SIMVASTATIN
  3. LISINOPRIL. [Concomitant]
     Active Substance: LISINOPRIL
  4. ALEVE CAPLETS [Suspect]
     Active Substance: NAPROXEN SODIUM
  5. LIALDA [Concomitant]
     Active Substance: MESALAMINE
  6. METROPOLOL [Concomitant]
     Active Substance: METOPROLOL
  7. ALEVE CAPLETS [Suspect]
     Active Substance: NAPROXEN SODIUM
     Dosage: 2 DF, BID,
     Dates: end: 20140908

REACTIONS (4)
  - Drug ineffective [Unknown]
  - Extra dose administered [Unknown]
  - Drug effect incomplete [Unknown]
  - Incorrect drug administration duration [Unknown]
